FAERS Safety Report 10472530 (Version 1)
Quarter: 2014Q3

REPORT INFORMATION
  Report Type: Spontaneous
  Country: SE (occurrence: SE)
  Receive Date: 20140924
  Receipt Date: 20140924
  Transmission Date: 20150326
  Serious: Yes (Disabling)
  Sender: FDA-Public Use
  Company Number: SE-B.I. PHARMACEUTICALS,INC./RIDGEFIELD-2014-BI-44869SW

PATIENT
  Age: 73 Year
  Sex: Male

DRUGS (1)
  1. PRADAXA [Suspect]
     Active Substance: DABIGATRAN ETEXILATE MESYLATE
     Indication: ATRIAL FIBRILLATION
     Dosage: 300 MG
     Route: 048
     Dates: start: 201309

REACTIONS (1)
  - Cerebral infarction [Not Recovered/Not Resolved]

NARRATIVE: CASE EVENT DATE: 20140830
